FAERS Safety Report 5733709-8 (Version None)
Quarter: 2008Q2

REPORT INFORMATION
  Report Type: 
  Country: None (occurrence: None)
  Receive Date: 20080509
  Receipt Date: 20080429
  Transmission Date: 20081010
  Serious: Yes (Death)
  Sender: FDA-Public Use
  Company Number: FR-PFIZER INC-2006029222

PATIENT
  Sex: Male
  Weight: 55 kg

DRUGS (13)
  1. SU-011,248 [Suspect]
     Route: 048
     Dates: start: 20051027, end: 20051109
  2. SU-011,248 [Suspect]
     Route: 048
     Dates: start: 20051208, end: 20060103
  3. SU-011,248 [Suspect]
     Route: 048
     Dates: start: 20051027, end: 20060208
  4. FLUINDIONE [Concomitant]
     Route: 048
  5. OMEPRAZOLE [Concomitant]
     Route: 048
     Dates: start: 20060210
  6. GLUCOSE [Concomitant]
     Route: 042
     Dates: start: 20060207, end: 20060218
  7. NIFEDIPINE [Concomitant]
     Route: 048
     Dates: start: 20051206
  8. NEBIVOLOL HCL [Concomitant]
     Route: 048
     Dates: start: 20051206
  9. FUROSEMIDE [Concomitant]
     Route: 048
     Dates: start: 20051206
  10. POTASSIUM CHLORIDE [Concomitant]
     Route: 048
     Dates: start: 20051206
  11. ACETAZOLAMIDE [Concomitant]
     Route: 048
     Dates: start: 20051216
  12. GAVISCON [Concomitant]
     Route: 048
     Dates: start: 20060206, end: 20060218
  13. FLUCONAZOLE [Concomitant]
     Route: 048
     Dates: start: 20060206, end: 20060220

REACTIONS (1)
  - RESPIRATORY FAILURE [None]
